FAERS Safety Report 8541392-1 (Version None)
Quarter: 2012Q3

REPORT INFORMATION
  Report Type: 
  Country: None (occurrence: None)
  Receive Date: 20120726
  Receipt Date: 20120719
  Transmission Date: 20120928
  Serious: Yes (Hospitalization)
  Sender: FDA-Public Use
  Company Number: JP-VERTEX PHARMACEUTICALS INC.-AE-2012-009241

PATIENT
  Age: 50 Year
  Sex: Male

DRUGS (10)
  1. REBETOL [Concomitant]
     Route: 048
     Dates: start: 20120619
  2. TELAVIC (TELAPREVIR) [Suspect]
     Indication: HEPATITIS C
     Route: 048
     Dates: start: 20120530, end: 20120604
  3. ALLOPURINOL [Concomitant]
     Route: 048
     Dates: start: 20120530
  4. REBETOL [Concomitant]
     Indication: HEPATITIS C
     Route: 048
     Dates: start: 20120530, end: 20120604
  5. PEGINTERFERON ALFA-2B [Concomitant]
     Indication: HEPATITIS C
     Route: 058
     Dates: start: 20120530
  6. ROXATIDINE ACETATE HCL [Concomitant]
     Route: 048
  7. PROMACTA [Concomitant]
     Route: 048
     Dates: start: 20120530
  8. TELAVIC (TELAPREVIR) [Suspect]
     Route: 048
     Dates: start: 20120619
  9. OLMESARTAN MEDOXOMIL [Concomitant]
     Route: 048
  10. TAMSULOSIN HCL [Concomitant]
     Route: 048
     Dates: start: 20120620

REACTIONS (1)
  - BLOOD CREATININE INCREASED [None]
